FAERS Safety Report 6523764-X (Version None)
Quarter: 2009Q4

REPORT INFORMATION
  Report Type: 
  Country: None (occurrence: None)
  Receive Date: 20091231
  Receipt Date: 20091230
  Transmission Date: 20100525
  Serious: Yes (Life-Threatening, Hospitalization, Other)
  Sender: FDA-Public Use
  Company Number: DE-JNJFOC-20080906544

PATIENT
  Sex: Male
  Weight: 89 kg

DRUGS (10)
  1. HALDOL-JANSSEN [Suspect]
     Indication: DELIRIUM TREMENS
     Route: 042
  2. HALDOL-JANSSEN [Suspect]
     Route: 048
  3. CONVULEX [Interacting]
     Indication: DELIRIUM TREMENS
     Route: 048
  4. CONVULEX [Interacting]
     Route: 048
  5. HYDROCHLOROTHIAZIDE [Concomitant]
     Indication: HYPERTENSION
     Route: 048
  6. RAMIPRIL [Concomitant]
     Indication: HYPERTENSION
  7. METOHEXAL [Concomitant]
     Indication: HYPERTENSION
     Route: 048
  8. DIAZEPAM [Concomitant]
     Indication: DELIRIUM TREMENS
     Route: 042
  9. DIAZEPAM [Concomitant]
     Route: 048
  10. TAVOR [Concomitant]
     Indication: DELIRIUM TREMENS
     Route: 048

REACTIONS (4)
  - DRUG INTERACTION [None]
  - HYPOKALAEMIA [None]
  - LONG QT SYNDROME [None]
  - TORSADE DE POINTES [None]
